FAERS Safety Report 10192309 (Version 3)
Quarter: 2014Q3

REPORT INFORMATION
  Report Type: Spontaneous
  Country: JP (occurrence: JP)
  Receive Date: 20140523
  Receipt Date: 20140721
  Transmission Date: 20150326
  Serious: Yes (Hospitalization, Other)
  Sender: FDA-Public Use
  Company Number: PHHY2014JP057488

PATIENT
  Age: 70 Year
  Sex: Female
  Weight: 55 kg

DRUGS (5)
  1. REBAMIPIDE [Concomitant]
     Active Substance: REBAMIPIDE
     Indication: PROPHYLAXIS
     Dosage: 300 MG
     Route: 048
     Dates: start: 20100601
  2. GLIVEC [Suspect]
     Active Substance: IMATINIB MESYLATE
     Indication: GASTROINTESTINAL STROMAL TUMOUR
     Dosage: 300 MG, DAILY
     Route: 048
     Dates: start: 20100530
  3. METHYCOBAL [Concomitant]
     Active Substance: METHYLCOBALAMIN
     Indication: PROPHYLAXIS
     Dosage: 1500 UG
     Route: 048
     Dates: start: 2013
  4. PARIET [Concomitant]
     Active Substance: RABEPRAZOLE SODIUM
     Indication: HAEMORRHAGE PROPHYLAXIS
     Dosage: 10 MG
     Route: 048
     Dates: start: 20100517, end: 20140502
  5. NEXIUM [Concomitant]
     Active Substance: ESOMEPRAZOLE MAGNESIUM
     Indication: HAEMORRHAGE PROPHYLAXIS
     Dosage: 20 MG
     Route: 048
     Dates: end: 20140503

REACTIONS (7)
  - Gastric antral vascular ectasia [Recovering/Resolving]
  - Gastrointestinal haemorrhage [Unknown]
  - Chronic gastritis [Unknown]
  - Anaemia [Recovered/Resolved]
  - Red blood cell count decreased [Unknown]
  - Oedema [Recovering/Resolving]
  - Blood creatinine increased [Unknown]

NARRATIVE: CASE EVENT DATE: 20100625
